FAERS Safety Report 14731515 (Version 2)
Quarter: 2018Q2

REPORT INFORMATION
  Report Type: Report from Study
  Country: US (occurrence: US)
  Receive Date: 20180407
  Receipt Date: 20180510
  Transmission Date: 20180711
  Serious: Yes (Hospitalization, Other)
  Sender: FDA-Public Use
  Company Number: US-TEVA-2018-US-877886

PATIENT
  Age: 3 Year
  Sex: Male
  Weight: 14.2 kg

DRUGS (31)
  1. VINCRISTINE [Suspect]
     Active Substance: VINCRISTINE
     Dosage: ONCE CONS D22
     Route: 042
     Dates: start: 20180104, end: 20180104
  2. MERCAPTOPURINE. [Suspect]
     Active Substance: MERCAPTOPURINE
     Indication: ACUTE LYMPHOCYTIC LEUKAEMIA
     Dosage: 40 MILLIGRAM DAILY; CONS D1-D14
     Route: 048
     Dates: start: 20171215, end: 20180112
  3. ASPARAGINASE [Suspect]
     Active Substance: ASPARAGINASE
     Dosage: 16,750 UNITS, ONCE,CONS D18
     Route: 030
     Dates: start: 20180101
  4. BACTRIM [Concomitant]
     Active Substance: SULFAMETHOXAZOLE\TRIMETHOPRIM
     Route: 065
     Dates: start: 20171112
  5. LIDOCAINE WIPRILOCAINE [Concomitant]
     Route: 065
     Dates: start: 20171112
  6. CYTARABINE. [Suspect]
     Active Substance: CYTARABINE
     Dosage: 50 MILLIGRAM DAILY;
     Route: 042
     Dates: start: 20180125
  7. CYCLOPHOSPHAMIDE. [Suspect]
     Active Substance: CYCLOPHOSPHAMIDE
     Indication: ACUTE LYMPHOCYTIC LEUKAEMIA
     Dosage: SINGLE CONS D1
     Route: 042
     Dates: start: 20171215, end: 20180112
  8. MIRALAX [Concomitant]
     Active Substance: POLYETHYLENE GLYCOL 3350
     Route: 065
     Dates: start: 20171112
  9. REGLAN [Concomitant]
     Active Substance: METOCLOPRAMIDE HYDROCHLORIDE
     Route: 065
     Dates: start: 20171214
  10. METHOTREXATE. [Suspect]
     Active Substance: METHOTREXATE
     Indication: ACUTE LYMPHOCYTIC LEUKAEMIA
     Dosage: 12 MILLIGRAM DAILY; CONS D22, INTRAVENOUS.
     Route: 037
     Dates: start: 20180104, end: 20180104
  11. PEGASPARGASE [Suspect]
     Active Substance: PEGASPARGASE
     Indication: ACUTE LYMPHOCYTIC LEUKAEMIA
     Dosage: 1,675 1UIM2,ONCE, CONS D14
     Route: 042
     Dates: start: 20171228, end: 20171228
  12. ASPARAGINASE [Suspect]
     Active Substance: ASPARAGINASE
     Dosage: 16,750 UNITS,CONS D43
     Route: 030
     Dates: start: 20180209
  13. POLY-VI-SOL [Concomitant]
     Active Substance: VITAMINS
     Route: 065
     Dates: start: 20171112
  14. MELATONIN [Concomitant]
     Active Substance: MELATONIN
     Route: 065
     Dates: start: 20171116
  15. CYTARABINE. [Suspect]
     Active Substance: CYTARABINE
     Indication: ACUTE LYMPHOCYTIC LEUKAEMIA
     Dosage: 50 MILLIGRAM DAILY; CONS D8-D11
     Route: 042
     Dates: start: 20171221, end: 20180112
  16. CALCIUM CARBONATE. [Concomitant]
     Active Substance: CALCIUM CARBONATE
     Route: 065
     Dates: start: 20171112
  17. COLECALCIFEROL [Concomitant]
     Active Substance: CHOLECALCIFEROL
     Route: 065
     Dates: start: 20171112
  18. ZOFRAN [Concomitant]
     Active Substance: ONDANSETRON HYDROCHLORIDE
     Route: 065
     Dates: start: 20171112
  19. VINCRISTINE [Suspect]
     Active Substance: VINCRISTINE
     Indication: ACUTE LYMPHOCYTIC LEUKAEMIA
     Dosage: ONCE (CONS D50)
     Route: 042
     Dates: start: 20180215, end: 20180215
  20. MERCAPTOPURINE. [Suspect]
     Active Substance: MERCAPTOPURINE
     Dosage: 40 MILLIGRAM DAILY;
     Route: 048
     Dates: start: 20180125
  21. ASPARAGINASE [Suspect]
     Active Substance: ASPARAGINASE
     Dosage: 16,750 UNITS, ONCE,CONS D15
     Route: 030
     Dates: start: 20171229, end: 20171229
  22. ASPARAGINASE [Suspect]
     Active Substance: ASPARAGINASE
     Dosage: 16,750 UNITS, CONS D20
     Route: 030
     Dates: start: 20180103
  23. MICONAZOLE. [Concomitant]
     Active Substance: MICONAZOLE
     Route: 065
     Dates: start: 20180108
  24. INCB018424 [Suspect]
     Active Substance: RUXOLITINIB
     Indication: ACUTE LYMPHOCYTIC LEUKAEMIA
     Dosage: 50 MILLIGRAM DAILY; CONS D1-D28
     Route: 065
     Dates: start: 20171215, end: 20180112
  25. INCB018424 [Suspect]
     Active Substance: RUXOLITINIB
     Dosage: 50 MILLIGRAM DAILY; CONS 029-056
     Route: 048
     Dates: start: 20180125
  26. ROXICODONE [Concomitant]
     Active Substance: OXYCODONE HYDROCHLORIDE
     Route: 065
     Dates: start: 20171112
  27. LACTULOSE. [Concomitant]
     Active Substance: LACTULOSE
     Route: 065
     Dates: start: 20171112
  28. BENADRYL [Concomitant]
     Active Substance: DIPHENHYDRAMINE HYDROCHLORIDE
     Route: 065
     Dates: start: 20171214
  29. CYTARABINE. [Suspect]
     Active Substance: CYTARABINE
     Dosage: 50 MILLIGRAM DAILY; CONS D36-D39
     Route: 042
     Dates: start: 20180201
  30. CYCLOPHOSPHAMIDE. [Suspect]
     Active Substance: CYCLOPHOSPHAMIDE
     Dosage: CONS 029
     Route: 042
     Dates: start: 20180125, end: 20180125
  31. HYDROXYZINE [Concomitant]
     Active Substance: HYDROXYZINE HYDROCHLORIDE
     Route: 065
     Dates: start: 20171112

REACTIONS (2)
  - Diarrhoea [Recovered/Resolved]
  - Febrile neutropenia [Recovered/Resolved]
